FAERS Safety Report 14563148 (Version 1)
Quarter: 2018Q1

REPORT INFORMATION
  Report Type: Spontaneous
  Country: JP (occurrence: JP)
  Receive Date: 20180222
  Receipt Date: 20180222
  Transmission Date: 20180509
  Serious: Yes (Other)
  Sender: FDA-Public Use
  Company Number: US-ASTRAZENECA-2018SE20534

PATIENT
  Age: 50 Year
  Sex: Male

DRUGS (5)
  1. EPADEL [Concomitant]
     Active Substance: ICOSAPENT
  2. CRESTOR [Suspect]
     Active Substance: ROSUVASTATIN CALCIUM
     Dosage: 2.5MG UNKNOWN
     Route: 048
     Dates: end: 20170713
  3. REPATHA [Suspect]
     Active Substance: EVOLOCUMAB
     Indication: DYSLIPIDAEMIA
     Dosage: 140.0MG UNKNOWN
     Route: 058
     Dates: start: 20170823
  4. REPATHA [Suspect]
     Active Substance: EVOLOCUMAB
     Indication: DYSLIPIDAEMIA
     Dosage: 140.0MG UNKNOWN
     Route: 058
     Dates: start: 20170608, end: 2017
  5. CRESTOR [Suspect]
     Active Substance: ROSUVASTATIN CALCIUM
     Dosage: 2.5MG UNKNOWN
     Route: 048
     Dates: start: 20170824

REACTIONS (2)
  - Subclavian artery stenosis [Unknown]
  - Off label use [Unknown]

NARRATIVE: CASE EVENT DATE: 20170823
